FAERS Safety Report 6822119-8 (Version None)
Quarter: 2010Q3

REPORT INFORMATION
  Report Type: 
  Country: None (occurrence: None)
  Receive Date: 20100708
  Receipt Date: 20100630
  Transmission Date: 20110219
  Serious: Yes (Hospitalization)
  Sender: FDA-Public Use
  Company Number: JP-ASTRAZENECA-2010SE30786

PATIENT
  Age: 11 Year
  Sex: Male

DRUGS (3)
  1. ZESTRIL [Suspect]
     Indication: IGA NEPHROPATHY
     Dosage: DOSE UNKNOWN
     Route: 048
     Dates: start: 20090801
  2. MIZORIBINE [Suspect]
     Indication: IGA NEPHROPATHY
     Dosage: 3.3MG/KG
     Route: 048
     Dates: start: 20090801
  3. ADRENAL HORMONE PREPARATIONS [Concomitant]
     Dosage: DOSE UNKNOWN
     Route: 065

REACTIONS (2)
  - HYPERURICAEMIA [None]
  - RENAL IMPAIRMENT [None]
